FAERS Safety Report 9349599 (Version 1)
Quarter: 2013Q2

REPORT INFORMATION
  Report Type: Spontaneous
  Country: US (occurrence: US)
  Receive Date: 20130614
  Receipt Date: 20130614
  Transmission Date: 20140414
  Serious: No
  Sender: FDA-Public Use
  Company Number: US-009507513-1306USA005237

PATIENT
  Sex: Female

DRUGS (1)
  1. MIRALAX [Suspect]
     Indication: CONSTIPATION
     Dosage: 17 G, UNK
     Route: 048
     Dates: start: 20130604

REACTIONS (1)
  - Drug ineffective [Unknown]
